FAERS Safety Report 8067004-1 (Version None)
Quarter: 2012Q1

REPORT INFORMATION
  Report Type: 
  Country: None (occurrence: None)
  Receive Date: 20120124
  Receipt Date: 20120119
  Transmission Date: 20120608
  Serious: Yes (Disabling, Other)
  Sender: FDA-Public Use
  Company Number: US-MERCK-1102USA02523

PATIENT
  Age: 66 Year
  Sex: Female

DRUGS (4)
  1. FOSAMAX [Suspect]
     Indication: OSTEOPENIA
     Route: 048
     Dates: start: 20050101, end: 20090101
  2. FOSAMAX [Suspect]
     Indication: OSTEOPOROSIS
     Route: 048
     Dates: start: 20050101, end: 20090101
  3. FOSAMAX PLUS D [Suspect]
     Indication: OSTEOPOROSIS
     Route: 048
  4. FOSAMAX PLUS D [Suspect]
     Indication: OSTEOPENIA
     Route: 048

REACTIONS (17)
  - FEMUR FRACTURE [None]
  - OSTEONECROSIS [None]
  - ANXIETY [None]
  - LIMB ASYMMETRY [None]
  - GASTROINTESTINAL DISORDER [None]
  - BACK PAIN [None]
  - JOINT INJURY [None]
  - TOOTH DISORDER [None]
  - POST-TRAUMATIC STRESS DISORDER [None]
  - PEPTIC ULCER [None]
  - INFECTION [None]
  - HERPES ZOSTER [None]
  - HYPERTENSION [None]
  - DEPRESSION [None]
  - BONE DISORDER [None]
  - FRACTURE NONUNION [None]
  - FOOT FRACTURE [None]
